FAERS Safety Report 5887197-1 (Version None)
Quarter: 2008Q3

REPORT INFORMATION
  Report Type: 
  Country: None (occurrence: None)
  Receive Date: 20080915
  Receipt Date: 20080829
  Transmission Date: 20090109
  Serious: Yes (Other)
  Sender: FDA-Public Use
  Company Number: DSA_32378_2008

PATIENT
  Sex: Female

DRUGS (5)
  1. LORAZEPAM [Suspect]
     Indication: DRUG USE FOR UNKNOWN INDICATION
     Dosage: (2.5 MG QD ORAL)
     Route: 048
     Dates: start: 20080711, end: 20080711
  2. EPINEPHRINE (ADRENALIN - EPINEPHRINE) [Suspect]
     Indication: DRUG USE FOR UNKNOWN INDICATION
     Dosage: (1 MG QD SUBCUTANEOUS)
     Route: 058
     Dates: start: 20080711, end: 20080711
  3. CARBOSTESIN /00330102/ (CARBOSTESIN - BUPIVACAINE HYDROCHLORIDE) (NOT [Suspect]
     Indication: DRUG USE FOR UNKNOWN INDICATION
     Dosage: (10 MG QD SUBCUTANEOUS)
     Route: 058
     Dates: start: 20080711, end: 20080711
  4. LEXOTANIL (LEXOTANIL - BROMAZEPAM) (NOT SPECIFIED) [Suspect]
     Indication: DRUG USE FOR UNKNOWN INDICATION
     Dosage: (3 MG QD ORAL)
     Route: 048
     Dates: start: 20080711, end: 20080711
  5. NAROPIN (NAROPIN - ROPIVACAINE HYDROCHLORIDE) (NOT SPECIFIED) [Suspect]
     Indication: DRUG USE FOR UNKNOWN INDICATION
     Dosage: (250 MG QD SUBCUTANEOUS)
     Route: 058
     Dates: start: 20080711, end: 20080711

REACTIONS (3)
  - FACIAL PALSY [None]
  - LIP DISORDER [None]
  - PARALYSIS [None]
